FAERS Safety Report 4784629-7 (Version None)
Quarter: 2005Q3

REPORT INFORMATION
  Report Type: 
  Country: None (occurrence: None)
  Receive Date: 20050928
  Receipt Date: 20050912
  Transmission Date: 20060218
  Serious: Yes (Death)
  Sender: FDA-Public Use
  Company Number: USA0508104502

PATIENT
  Age: 80 Year
  Sex: Male
  Weight: 72 kg

DRUGS (9)
  1. SYMBYAX [Suspect]
     Indication: MAJOR DEPRESSION
     Dates: start: 20041208
  2. SYMBYAX [Suspect]
     Indication: PSYCHOTIC DISORDER
     Dates: start: 20041208
  3. OLANZAPINE [Suspect]
     Dosage: 2.5 MG
     Dates: start: 20050509, end: 20050718
  4. ZOCOR [Concomitant]
  5. PROTONIX [Concomitant]
  6. SYNTHROID [Concomitant]
  7. GALENIC /BELLADONNA/PHENOBARBITAL/ [Concomitant]
  8. METOCLOPRAMIDE HYDROCHLORIDE [Concomitant]
  9. ATENOLOL [Concomitant]

REACTIONS (2)
  - ACUTE MYOCARDIAL INFARCTION [None]
  - WEIGHT INCREASED [None]
